FAERS Safety Report 8773127 (Version 1)
Quarter: 2012Q4

REPORT INFORMATION
  Report Type: 
  Country: FR (occurrence: FR)
  Receive Date: 20120907
  Receipt Date: 20120907
  Transmission Date: 20130627
  Serious: Yes (Hospitalization)
  Sender: FDA-Public Use
  Company Number: FR-ASTELLAS-2012EU006446

PATIENT
  Age: 92 Year
  Sex: Male

DRUGS (9)
  1. VESICARE [Suspect]
     Dosage: 10 mg, UID/QD
     Route: 048
     Dates: end: 201206
  2. EBIXA [Suspect]
     Dosage: 20 mg, UID/QD
     Route: 048
  3. ADANCOR [Concomitant]
     Dosage: UNK mg, Unknown/D
     Route: 065
  4. AMLODIPINE [Concomitant]
     Dosage: UNK
     Route: 065
  5. PLAVIX [Concomitant]
     Dosage: UNK
     Route: 065
  6. PERMIXON [Concomitant]
     Dosage: UNK
     Route: 065
  7. CRESTOR [Concomitant]
     Dosage: UNK
     Route: 065
  8. LACTULOSE [Concomitant]
     Dosage: UNK
     Route: 065
  9. EFFERALGAN                         /00020001/ [Concomitant]
     Dosage: UNK
     Route: 065

REACTIONS (1)
  - Anticholinergic syndrome [Recovered/Resolved]
